FAERS Safety Report 5797492-2 (Version None)
Quarter: 2008Q2

REPORT INFORMATION
  Report Type: 
  Country: None (occurrence: None)
  Receive Date: 20080630
  Receipt Date: 20080620
  Transmission Date: 20081010
  Serious: Yes (Other)
  Sender: FDA-Public Use
  Company Number: 2008016475

PATIENT
  Age: 28 Year
  Sex: Female
  Weight: 70.3075 kg

DRUGS (2)
  1. BENGAY ULTRA STRENGTH PATCH (MENTHOL) [Suspect]
     Indication: MUSCULOSKELETAL PAIN
     Dosage: 1PATCH 1 DAY (1 IN 1 D), TOPICAL
     Route: 061
     Dates: start: 20080619, end: 20080619
  2. LEVOTHYROXINE SODIUM [Concomitant]

REACTIONS (5)
  - APPLICATION SITE BURN [None]
  - APPLICATION SITE ERYTHEMA [None]
  - APPLICATION SITE REACTION [None]
  - APPLICATION SITE URTICARIA [None]
  - EXPIRED DRUG ADMINISTERED [None]
